FAERS Safety Report 14172930 (Version 2)
Quarter: 2017Q4

REPORT INFORMATION
  Report Type: Report from Study
  Country: None (occurrence: US)
  Receive Date: 20171109
  Receipt Date: 20171213
  Transmission Date: 20180321
  Serious: Yes (Other)
  Sender: FDA-Public Use
  Company Number: US-ABBVIE-17K-163-2152842-00

PATIENT
  Age: 24 Year
  Sex: Female
  Weight: 127.12 kg

DRUGS (6)
  1. IBUPROFEN. [Concomitant]
     Active Substance: IBUPROFEN
     Indication: HIDRADENITIS
  2. PROZAC [Concomitant]
     Active Substance: FLUOXETINE HYDROCHLORIDE
     Indication: DEPRESSION
  3. DOXYCYCLINE. [Concomitant]
     Active Substance: DOXYCYCLINE
     Indication: MALAISE
  4. HUMIRA [Suspect]
     Active Substance: ADALIMUMAB
     Indication: HIDRADENITIS
     Route: 058
     Dates: start: 201707
  5. XANAX [Concomitant]
     Active Substance: ALPRAZOLAM
     Indication: ANXIETY
  6. SEROQUEL [Concomitant]
     Active Substance: QUETIAPINE FUMARATE
     Indication: INSOMNIA

REACTIONS (10)
  - Psychogenic seizure [Recovered/Resolved]
  - Hypertension [Not Recovered/Not Resolved]
  - Anxiety [Unknown]
  - Gastrooesophageal reflux disease [Not Recovered/Not Resolved]
  - Seizure [Recovered/Resolved]
  - Fall [Recovered/Resolved]
  - Chest pain [Not Recovered/Not Resolved]
  - Loss of consciousness [Recovered/Resolved]
  - Stress [Not Recovered/Not Resolved]
  - Face injury [Recovered/Resolved]

NARRATIVE: CASE EVENT DATE: 2017
